FAERS Safety Report 25903589 (Version 1)
Quarter: 2025Q4

REPORT INFORMATION
  Report Type: Spontaneous
  Country: US (occurrence: US)
  Receive Date: 20251010
  Receipt Date: 20251010
  Transmission Date: 20260117
  Serious: No
  Sender: SANOFI AVENTIS
  Company Number: US-SA-2025SA299773

PATIENT
  Age: 23 Year
  Sex: Female

DRUGS (6)
  1. DUPIXENT [Suspect]
     Active Substance: DUPILUMAB
     Indication: Eosinophilic oesophagitis
     Dosage: 300 MG, QW
     Route: 058
     Dates: start: 20250813, end: 2025
  2. CORLANOR [Concomitant]
     Active Substance: IVABRADINE HYDROCHLORIDE
  3. FLUTICASONE [Concomitant]
     Active Substance: FLUTICASONE
  4. METOPROLOL TARTRATE [Concomitant]
     Active Substance: METOPROLOL TARTRATE
  5. ESOMEPRA [ESOMEPRAZOLE MAGNESIUM] [Concomitant]
  6. FLUDROCORTISONE [Concomitant]
     Active Substance: FLUDROCORTISONE

REACTIONS (1)
  - Cardiac disorder [Unknown]

NARRATIVE: CASE EVENT DATE: 20250101
